FAERS Safety Report 7584454-8 (Version None)
Quarter: 2011Q2

REPORT INFORMATION
  Report Type: 
  Country: None (occurrence: None)
  Receive Date: 20110630
  Receipt Date: 20110627
  Transmission Date: 20111010
  Serious: Yes (Hospitalization, Other)
  Sender: FDA-Public Use
  Company Number: GB-PFIZER INC-2009293597

PATIENT
  Age: 71 Year
  Sex: Female

DRUGS (11)
  1. BENDROFLUMETHIAZIDE [Suspect]
  2. DOXAZOSIN MESYLATE [Suspect]
     Dosage: UNK
  3. GLICLAZIDE [Suspect]
     Indication: DIABETES MELLITUS
     Dosage: 80 MG, 2X/DAY
     Route: 048
  4. BENDROFLUAZIDE [Suspect]
     Dosage: UNK
  5. IRBESARTAN [Suspect]
  6. ALLOPURINOL [Suspect]
     Indication: GOUT
     Route: 048
  7. CLOPIDOGREL [Suspect]
  8. PERINDOPRIL [Suspect]
     Route: 048
  9. METFORMIN HCL [Suspect]
     Indication: DIABETES MELLITUS
     Dosage: 1 G, 2X/DAY
  10. ASPIRIN [Suspect]
  11. ATENOLOL [Suspect]
     Route: 048

REACTIONS (4)
  - LACTIC ACIDOSIS [None]
  - RENAL FAILURE ACUTE [None]
  - DRUG INTERACTION [None]
  - HYPOGLYCAEMIA [None]
